FAERS Safety Report 12234805 (Version 1)
Quarter: 2016Q2

REPORT INFORMATION
  Report Type: Spontaneous
  Country: US (occurrence: US)
  Receive Date: 20160404
  Receipt Date: 20160404
  Transmission Date: 20160815
  Serious: Yes (Life-Threatening)
  Sender: FDA-Public Use
  Company Number: US-VERNALIS THERAPEUTICS, INC.-2016VRN00009

PATIENT

DRUGS (1)
  1. CODEINE [Suspect]
     Active Substance: CODEINE
     Dosage: UNK
     Route: 065

REACTIONS (1)
  - Suicide attempt [Unknown]
